FAERS Safety Report 18601508 (Version 4)
Quarter: 2021Q1

REPORT INFORMATION
  Report Type: Report from Study
  Country: UA (occurrence: UA)
  Receive Date: 20201210
  Receipt Date: 20210112
  Transmission Date: 20210419
  Serious: Yes (Death)
  Sender: FDA-Public Use
  Company Number: UA-ROCHE-2728718

PATIENT
  Age: 71 Year
  Sex: Female
  Weight: 87.4 kg

DRUGS (1)
  1. ATEZOLIZUMAB. [Suspect]
     Active Substance: ATEZOLIZUMAB
     Indication: NON-SMALL CELL LUNG CANCER STAGE IV
     Dosage: MOST RECENT DOSE OF STUDY DRUG ATEZOLIZUMAB PRIOR TO ADVERSE EVENT ONSET 26/NOV/2020 1200 MG
     Route: 041
     Dates: start: 20200810

REACTIONS (1)
  - General physical health deterioration [Fatal]

NARRATIVE: CASE EVENT DATE: 20201207
